FAERS Safety Report 5487255-X (Version None)
Quarter: 2007Q4

REPORT INFORMATION
  Report Type: 
  Country: None (occurrence: None)
  Receive Date: 20071015
  Receipt Date: 20071005
  Transmission Date: 20080405
  Serious: Yes (Death, Hospitalization)
  Sender: FDA-Public Use
  Company Number: 2007US002241

PATIENT
  Age: 63 Year
  Sex: Male

DRUGS (12)
  1. PROGRAF [Suspect]
     Indication: LIVER TRANSPLANT
     Dosage: 3 MG, BID, ORAL
     Route: 048
     Dates: start: 20030911, end: 20070910
  2. INSULIN (INSULIN HUMAN) [Concomitant]
  3. PERI-COLACE [Concomitant]
  4. PROCARDIA [Concomitant]
  5. CENTRUM (BIOTIN, ASCORBIC ACID) [Concomitant]
  6. FLORINEF [Concomitant]
  7. DIOVAN [Concomitant]
  8. ADVAIR DISKUS 100/50 [Concomitant]
  9. COMBIVENT (IPRATROPIUM BROMIDE) [Concomitant]
  10. FLUCONAZOLE [Concomitant]
  11. MAG-OX (MAGNESIUM OXIDE) [Concomitant]
  12. OXYCONTIN [Concomitant]

REACTIONS (2)
  - COMPLETED SUICIDE [None]
  - GUN SHOT WOUND [None]
